FAERS Safety Report 21470872 (Version 1)
Quarter: 2022Q4

REPORT INFORMATION
  Report Type: Spontaneous
  Country: US (occurrence: US)
  Receive Date: 20221018
  Receipt Date: 20221018
  Transmission Date: 20230112
  Serious: Yes (Other)
  Sender: FDA-Public Use
  Company Number: US-SA-SAC20221017000014

PATIENT
  Age: 63 Year
  Sex: Female

DRUGS (1)
  1. ZANTAC [Suspect]
     Active Substance: RANITIDINE HYDROCHLORIDE
     Dosage: 150 MG, QD
     Dates: start: 199901, end: 202002

REACTIONS (1)
  - Gastric cancer stage IV [Recovering/Resolving]

NARRATIVE: CASE EVENT DATE: 20200101
